FAERS Safety Report 4895976-2 (Version None)
Quarter: 2005Q4

REPORT INFORMATION
  Report Type: 
  Country: None (occurrence: None)
  Receive Date: 20051220
  Receipt Date: 20050302
  Transmission Date: 20060501
  Serious: Yes (Other)
  Sender: FDA-Public Use
  Company Number: US118409

PATIENT
  Age: 59 Year
  Sex: Male

DRUGS (5)
  1. ENBREL [Suspect]
     Indication: PSORIATIC ARTHROPATHY
     Dosage: 50 MG, 1 IN 1 WEEKS, SC
     Route: 058
     Dates: start: 19990101, end: 20050301
  2. CELECOXIB [Concomitant]
  3. VALSARTAN [Concomitant]
  4. GLYBURIDE AND METFORMIN HCL [Concomitant]
  5. ATENOLOL [Concomitant]

REACTIONS (1)
  - MANTLE CELL LYMPHOMA [None]
